FAERS Safety Report 6399950-9 (Version None)
Quarter: 2009Q4

REPORT INFORMATION
  Report Type: 
  Country: None (occurrence: None)
  Receive Date: 20091014
  Receipt Date: 20090930
  Transmission Date: 20100525
  Serious: Yes (Disabling, Other)
  Sender: FDA-Public Use
  Company Number: DE-GENENTECH-282920

PATIENT
  Age: 86 Year
  Sex: Female

DRUGS (3)
  1. LUCENTIS [Suspect]
     Indication: CHOROIDAL NEOVASCULARISATION
     Dosage: UNK
     Route: 031
     Dates: start: 20080526
  2. LUCENTIS [Suspect]
     Dosage: UNK
     Route: 031
     Dates: start: 20081208
  3. FLUORESCITE [Concomitant]
     Indication: DRUG USE FOR UNKNOWN INDICATION

REACTIONS (1)
  - VISUAL ACUITY REDUCED [None]
